FAERS Safety Report 5478642-4 (Version None)
Quarter: 2007Q4

REPORT INFORMATION
  Report Type: 
  Country: None (occurrence: None)
  Receive Date: 20071005
  Receipt Date: 20070930
  Transmission Date: 20080405
  Serious: Yes (Other)
  Sender: FDA-Public Use
  Company Number: US-PFIZER INC-2005120178

PATIENT
  Age: 75 Year
  Sex: Female

DRUGS (6)
  1. DETROL LA [Suspect]
     Indication: POLLAKIURIA
  2. DETROL LA [Suspect]
     Indication: MICTURITION URGENCY
  3. DETROL LA [Suspect]
     Indication: INCONTINENCE
  4. ASPIRIN [Suspect]
  5. FOSAMAX [Concomitant]
  6. LEVOTHYROXINE SODIUM [Concomitant]

REACTIONS (8)
  - ABDOMINAL PAIN UPPER [None]
  - DYSURIA [None]
  - HERPES ZOSTER [None]
  - MALAISE [None]
  - MICTURITION URGENCY [None]
  - PAIN [None]
  - RASH [None]
  - VENOUS HAEMORRHAGE [None]
